FAERS Safety Report 10404077 (Version 1)
Quarter: 2014Q1

REPORT INFORMATION
  Report Type: Spontaneous
  Country: US (occurrence: None)
  Receive Date: 20130815
  Receipt Date: 20130815
  Transmission Date: 20141002
  Serious: Yes (Other)
  Sender: FDA-Public Use
  Company Number: ADR-2012-01326

PATIENT
  Sex: Female

DRUGS (1)
  1. BACLOFEN [Suspect]
     Indication: MUSCLE SPASTICITY

REACTIONS (8)
  - Hypertonia [None]
  - Blood pressure decreased [None]
  - Muscle spasms [None]
  - Gait disturbance [None]
  - Drug withdrawal syndrome [None]
  - Oedema peripheral [None]
  - Dizziness [None]
  - Constipation [None]
